FAERS Safety Report 9928041 (Version 1)
Quarter: 2014Q1

REPORT INFORMATION
  Report Type: Spontaneous
  Country: FR (occurrence: FR)
  Receive Date: 20140227
  Receipt Date: 20140227
  Transmission Date: 20141002
  Serious: Yes (Other)
  Sender: FDA-Public Use
  Company Number: FR-AMGEN-USASP2014012389

PATIENT
  Sex: 0

DRUGS (7)
  1. PANITUMUMAB [Suspect]
     Indication: COLORECTAL CANCER METASTATIC
     Dosage: 6 MG/KG, EVERY TWO WEEKS
     Route: 065
  2. 5 FLUOROURACIL                     /00098801/ [Concomitant]
     Indication: COLORECTAL CANCER METASTATIC
     Dosage: UNK
  3. LEUCOVORIN                         /00566701/ [Concomitant]
     Indication: COLORECTAL CANCER METASTATIC
     Dosage: UNK
  4. OXALIPLATIN [Concomitant]
     Indication: COLORECTAL CANCER METASTATIC
     Dosage: UNK
  5. IRINOTECAN [Concomitant]
     Indication: COLORECTAL CANCER METASTATIC
     Dosage: UNK
  6. CAPECITABINE [Concomitant]
     Indication: COLORECTAL CANCER METASTATIC
     Dosage: UNK
  7. DOXYCYCLINE [Concomitant]
     Indication: PROPHYLAXIS
     Dosage: UNK

REACTIONS (2)
  - Disease progression [Unknown]
  - Skin reaction [Unknown]
